FAERS Safety Report 5485943-2 (Version None)
Quarter: 2007Q4

REPORT INFORMATION
  Report Type: 
  Country: None (occurrence: None)
  Receive Date: 20071015
  Receipt Date: 20071008
  Transmission Date: 20080405
  Serious: Yes (Other)
  Sender: FDA-Public Use
  Company Number: GR-ABBOTT-07P-066-0417831-00

PATIENT
  Sex: Female

DRUGS (2)
  1. KLARICID [Suspect]
     Indication: RESPIRATORY TRACT INFECTION
     Route: 048
     Dates: start: 20070801, end: 20070801
  2. BUDESONIDE W/FORMOTEROL FUMARATE [Concomitant]
     Indication: RESPIRATORY TRACT INFECTION
     Route: 055
     Dates: start: 20070801, end: 20070801

REACTIONS (1)
  - ABORTION SPONTANEOUS [None]
